FAERS Safety Report 16008304 (Version 2)
Quarter: 2019Q1

REPORT INFORMATION
  Report Type: Spontaneous
  Country: US (occurrence: US)
  Receive Date: 20190226
  Receipt Date: 20190307
  Transmission Date: 20190418
  Serious: Yes (Congenital Anomaly)
  Sender: FDA-Public Use
  Company Number: US-ALLERGAN-1907942US

PATIENT

DRUGS (1)
  1. SUCRALFATE - BP [Suspect]
     Active Substance: SUCRALFATE
     Indication: PRODUCT USED FOR UNKNOWN INDICATION
     Dosage: UNK
     Route: 064

REACTIONS (1)
  - Heart disease congenital [Unknown]
